FAERS Safety Report 4770206-0 (Version None)
Quarter: 2005Q3

REPORT INFORMATION
  Report Type: 
  Country: None (occurrence: None)
  Receive Date: 20050915
  Receipt Date: 20050906
  Transmission Date: 20060218
  Serious: Yes (Other)
  Sender: FDA-Public Use
  Company Number: GB-JNJFOC-20050901536

PATIENT

DRUGS (1)
  1. RISPERDAL [Suspect]
     Route: 048

REACTIONS (1)
  - NEUTROPHIL COUNT DECREASED [None]
